FAERS Safety Report 9972818 (Version 2)
Quarter: 2014Q1

REPORT INFORMATION
  Report Type: Report from Study
  Country: US (occurrence: US)
  Receive Date: 20140306
  Receipt Date: 20140306
  Transmission Date: 20141002
  Serious: No
  Sender: FDA-Public Use
  Company Number: PHEH2013US026391

PATIENT
  Age: 70 Year
  Sex: Male

DRUGS (12)
  1. TASIGNA [Suspect]
     Indication: CHRONIC MYELOID LEUKAEMIA
     Dosage: 400 MG, BID
     Route: 048
     Dates: start: 20131112
  2. TASIGNA [Suspect]
     Dosage: 200 MG, BID
     Route: 048
     Dates: start: 20131119, end: 201312
  3. LANTUS [Concomitant]
     Indication: DIABETES MELLITUS
     Dosage: 22 U, QD
  4. LANTUS [Concomitant]
     Dosage: 22 U, QD
     Dates: start: 20131129
  5. ACTOPLUS MET [Concomitant]
     Indication: DIABETES MELLITUS
     Dosage: 15/850, TID
  6. AMARYL [Concomitant]
     Indication: DIABETES MELLITUS
     Dosage: 1 MG, QD
  7. ZESTRIL [Concomitant]
     Dosage: 40 MG, QD
  8. LASIX [Concomitant]
     Dosage: 40 MG, QD
  9. FLAMAX [Concomitant]
     Dosage: 0.4 MG, QD
  10. ASA [Concomitant]
     Dosage: 325 MG, QD
  11. LIPITOR [Concomitant]
     Dosage: 40 MG, QD
  12. VIT D3 [Concomitant]
     Dosage: 2000 IU, QD

REACTIONS (2)
  - Nausea [Unknown]
  - Vomiting [Unknown]
